FAERS Safety Report 6245872-3 (Version None)
Quarter: 2009Q2

REPORT INFORMATION
  Report Type: 
  Country: None (occurrence: None)
  Receive Date: 20090626
  Receipt Date: 20090623
  Transmission Date: 20091009
  Serious: Yes (Other)
  Sender: FDA-Public Use
  Company Number: US-BRISTOL-MYERS SQUIBB COMPANY-14677124

PATIENT
  Age: 72 Year
  Sex: Female

DRUGS (3)
  1. COUMADIN [Suspect]
     Dosage: COUMADIN ENDO
     Route: 065
  2. PLAVIX [Suspect]
     Indication: MYOCARDIAL INFARCTION
     Route: 048
     Dates: start: 20060101
  3. PLAVIX [Suspect]
     Indication: STENT PLACEMENT
     Route: 048
     Dates: start: 20060101

REACTIONS (2)
  - CORONARY ARTERY OCCLUSION [None]
  - HAEMORRHAGE [None]
